FAERS Safety Report 4294133-0 (Version None)
Quarter: 2004Q1

REPORT INFORMATION
  Report Type: 
  Country: None (occurrence: None)
  Receive Date: 20040212
  Receipt Date: 20040212
  Transmission Date: 20041129
  Serious: Yes (Hospitalization)
  Sender: FDA-Public Use
  Company Number: None

PATIENT
  Age: 24 Year
  Sex: Female

DRUGS (1)
  1. LITHIUM 300 MG TABS [Suspect]
     Indication: BIPOLAR DISORDER
     Dosage: 300 MG PO
     Route: 048

REACTIONS (6)
  - ALCOHOL USE [None]
  - DIALYSIS [None]
  - MEDICATION ERROR [None]
  - OVERDOSE [None]
  - SOMNOLENCE [None]
  - VOMITING [None]
